FAERS Safety Report 7783101-X (Version None)
Quarter: 2011Q3

REPORT INFORMATION
  Report Type: 
  Country: None (occurrence: None)
  Receive Date: 20110928
  Receipt Date: 20110922
  Transmission Date: 20111222
  Serious: Yes (Hospitalization)
  Sender: FDA-Public Use
  Company Number: US-B.I. PHARMACEUTICALS,INC./RIDGEFIELD-2011-BP-17916BP

PATIENT
  Sex: Female

DRUGS (16)
  1. SPIRIVA [Suspect]
     Indication: CHRONIC OBSTRUCTIVE PULMONARY DISEASE
     Dosage: 18 MCG
     Route: 055
     Dates: end: 20110501
  2. MUCINEX [Concomitant]
     Indication: CHRONIC OBSTRUCTIVE PULMONARY DISEASE
  3. SPIRIVA [Suspect]
     Route: 055
     Dates: start: 20110501
  4. ALBUTEROL [Concomitant]
     Indication: CHRONIC OBSTRUCTIVE PULMONARY DISEASE
  5. LISINOPRIL [Concomitant]
     Indication: HYPERTENSION
  6. NOVOLOG [Concomitant]
     Indication: DIABETES MELLITUS
  7. PREDNIZONE [Concomitant]
  8. OXYGEN [Concomitant]
     Indication: CHRONIC OBSTRUCTIVE PULMONARY DISEASE
  9. GABAPENTIN [Concomitant]
     Indication: MYALGIA
  10. ASPIRIN [Concomitant]
  11. LEVEMIR [Concomitant]
     Indication: DIABETES MELLITUS
  12. THEOPHYLLINE [Concomitant]
     Indication: CHRONIC OBSTRUCTIVE PULMONARY DISEASE
  13. POTASSIUM [Concomitant]
     Indication: MINERAL SUPPLEMENTATION
  14. LANTUS [Concomitant]
     Indication: DIABETES MELLITUS
  15. FUROSEMIDE [Concomitant]
     Indication: OEDEMA PERIPHERAL
  16. FORADIL [Concomitant]
     Indication: CHRONIC OBSTRUCTIVE PULMONARY DISEASE

REACTIONS (2)
  - DYSPNOEA [None]
  - RESPIRATORY TRACT INFECTION [None]
